FAERS Safety Report 23965112 (Version 1)
Quarter: 2024Q2

REPORT INFORMATION
  Report Type: Spontaneous
  Country: US (occurrence: US)
  Receive Date: 20240612
  Receipt Date: 20240612
  Transmission Date: 20240715
  Serious: No
  Sender: FDA-Public Use
  Company Number: US-APOTEX-2024AP007018

PATIENT
  Age: 69 Year
  Sex: Female

DRUGS (1)
  1. ZOLEDRONIC ACID [Suspect]
     Active Substance: ZOLEDRONIC ACID
     Indication: Osteoporosis postmenopausal
     Dosage: 5 MILLIGRAM
     Route: 042

REACTIONS (1)
  - Giant cell arteritis [Recovered/Resolved]
